FAERS Safety Report 9275487 (Version 1)
Quarter: 2013Q2

REPORT INFORMATION
  Report Type: Spontaneous
  Country: US (occurrence: None)
  Receive Date: 20130502
  Receipt Date: 20130502
  Transmission Date: 20140414
  Serious: Yes (Life-Threatening)
  Sender: FDA-Public Use
  Company Number: None

PATIENT
  Age: 19 Month
  Sex: Male
  Weight: 15 kg

DRUGS (13)
  1. VINCRISTINE SULFATE [Suspect]
     Indication: ACUTE LYMPHOCYTIC LEUKAEMIA
     Route: 037
     Dates: start: 20130422
  2. FAMOTIDINE [Concomitant]
  3. HYDROCORTISONE [Concomitant]
  4. L-ASPARAGINASE [Concomitant]
  5. MERCAPTOPURINE [Concomitant]
  6. METHOTREXATE [Concomitant]
  7. ACETAMINOPHEN [Concomitant]
  8. BENADRYL/NYSTATIN/PEROXIDE [Concomitant]
  9. MORPHINE [Concomitant]
  10. ONDANSETRON [Concomitant]
  11. METHOTREXATE [Concomitant]
  12. CYTARABINE [Concomitant]
  13. HYDROCORTISONE [Concomitant]

REACTIONS (1)
  - Neurological symptom [None]
